FAERS Safety Report 8468737 (Version 12)
Quarter: 2018Q4

REPORT INFORMATION
  Report Type: Spontaneous
  Country: US (occurrence: US)
  Receive Date: 20120320
  Receipt Date: 20181205
  Transmission Date: 20190205
  Serious: Yes (Hospitalization, Disabling, Other)
  Sender: FDA-Public Use
  Company Number: US-ASTRAZENECA-2011SE32269

PATIENT
  Age: 64 Year
  Sex: Female
  Weight: 62.6 kg

DRUGS (79)
  1. ACTIGALL/URSODIOL [Concomitant]
     Dates: start: 20080317
  2. ESTRACE/ESTRADIOL [Concomitant]
     Route: 048
     Dates: start: 201004
  3. CLARITIN [Concomitant]
     Active Substance: LORATADINE
     Dates: start: 20021105
  4. PROTONIX [Concomitant]
     Active Substance: PANTOPRAZOLE SODIUM
     Dates: start: 20021105
  5. METHYLTESTOSTERONE. [Concomitant]
     Active Substance: METHYLTESTOSTERONE
     Dates: start: 20011029
  6. NEXIUM [Suspect]
     Active Substance: ESOMEPRAZOLE MAGNESIUM
     Indication: GASTROOESOPHAGEAL REFLUX DISEASE
     Dosage: ONCE A DAY EVERYDAY
     Route: 048
     Dates: start: 2004, end: 2008
  7. METHYLPREDNISOLONE. [Concomitant]
     Active Substance: METHYLPREDNISOLONE
     Indication: JOINT SWELLING
     Dates: start: 2003
  8. KLONOPIN [Concomitant]
     Active Substance: CLONAZEPAM
     Dosage: 1.0MG UNKNOWN
     Dates: start: 20021105
  9. KLONOPIN [Concomitant]
     Active Substance: CLONAZEPAM
     Dosage: 1.0MG UNKNOWN
     Dates: start: 20030411
  10. KLONOPIN [Concomitant]
     Active Substance: CLONAZEPAM
     Dosage: UNKNOWN
     Dates: start: 20080317
  11. SPIRONOLACTONE/ALDACTONE [Concomitant]
     Dates: start: 20080317
  12. SYNTHROID [Concomitant]
     Active Substance: LEVOTHYROXINE SODIUM
     Indication: THYROID DISORDER
     Route: 048
  13. ACTIGALL/URSODIOL [Concomitant]
     Dates: start: 20060925
  14. PREMARIN [Concomitant]
     Active Substance: ESTROGENS, CONJUGATED
     Dates: start: 20060925
  15. LEXAPRO [Concomitant]
     Active Substance: ESCITALOPRAM OXALATE
     Dates: start: 20060925
  16. ZETIA [Concomitant]
     Active Substance: EZETIMIBE
     Dates: start: 20060925
  17. AMITRIPTYLINE [Concomitant]
     Active Substance: AMITRIPTYLINE
     Indication: SLEEP DISORDER
     Dosage: 10.0MG UNKNOWN
     Dates: start: 19961227
  18. CELEBREX [Concomitant]
     Active Substance: CELECOXIB
     Route: 048
     Dates: start: 20021105
  19. NEXIUM [Suspect]
     Active Substance: ESOMEPRAZOLE MAGNESIUM
     Indication: GASTROOESOPHAGEAL REFLUX DISEASE
     Route: 048
     Dates: start: 20060925
  20. NEXIUM [Suspect]
     Active Substance: ESOMEPRAZOLE MAGNESIUM
     Indication: GASTROOESOPHAGEAL REFLUX DISEASE
     Route: 048
     Dates: start: 20050604
  21. KLONOPIN [Concomitant]
     Active Substance: CLONAZEPAM
     Dosage: 0.5 MG 1 HS AND PRN UNKNOWN
     Dates: start: 20060925
  22. SPIRONOLACTONE/ALDACTONE [Concomitant]
     Route: 048
     Dates: start: 201004
  23. ZAROXOLYN [Concomitant]
     Active Substance: METOLAZONE
     Dates: start: 20021105
  24. FLEXERIL [Concomitant]
     Active Substance: CYCLOBENZAPRINE HYDROCHLORIDE
     Dates: start: 20021105
  25. ZOCOR [Concomitant]
     Active Substance: SIMVASTATIN
     Route: 048
     Dates: start: 201004
  26. DARVOCET [Concomitant]
     Active Substance: ACETAMINOPHEN\PROPOXYPHENE HYDROCHLORIDE
  27. TRAMADOL. [Concomitant]
     Active Substance: TRAMADOL
     Route: 048
     Dates: start: 20050823
  28. TUMS [Concomitant]
     Active Substance: CALCIUM CARBONATE
     Indication: DYSPEPSIA
  29. LASIX [Concomitant]
     Active Substance: FUROSEMIDE
     Indication: DIURETIC THERAPY
     Dates: start: 19961227
  30. SPIRONOLACTONE/ALDACTONE [Concomitant]
     Dates: start: 20060925
  31. AMITRIPTYLINE [Concomitant]
     Active Substance: AMITRIPTYLINE
     Indication: SLEEP DISORDER
     Dosage: 50.0MG UNKNOWN
     Route: 048
     Dates: start: 201004
  32. PRILOSEC [Concomitant]
     Active Substance: OMEPRAZOLE MAGNESIUM
     Dates: start: 20021217
  33. PRILOSEC [Concomitant]
     Active Substance: OMEPRAZOLE MAGNESIUM
     Dates: start: 20030507
  34. MAG-OX [Concomitant]
     Active Substance: MAGNESIUM OXIDE
     Route: 048
     Dates: start: 201004
  35. QUESTRAN [Concomitant]
     Active Substance: CHOLESTYRAMINE
     Route: 048
     Dates: start: 201004
  36. NEXIUM [Suspect]
     Active Substance: ESOMEPRAZOLE MAGNESIUM
     Indication: GASTROOESOPHAGEAL REFLUX DISEASE
     Route: 048
     Dates: start: 200101, end: 200502
  37. NEXIUM [Suspect]
     Active Substance: ESOMEPRAZOLE MAGNESIUM
     Indication: GASTROOESOPHAGEAL REFLUX DISEASE
     Route: 048
     Dates: start: 2002, end: 2009
  38. LASIX [Concomitant]
     Active Substance: FUROSEMIDE
     Indication: SLEEP DISORDER
     Dates: start: 19961227
  39. LASIX [Concomitant]
     Active Substance: FUROSEMIDE
     Indication: DIURETIC THERAPY
     Dates: start: 20021105
  40. LASIX [Concomitant]
     Active Substance: FUROSEMIDE
     Indication: DIURETIC THERAPY
     Route: 048
     Dates: start: 201004
  41. SPIRONOLACTONE/ALDACTONE [Concomitant]
     Dates: start: 20021105
  42. PREMARIN [Concomitant]
     Active Substance: ESTROGENS, CONJUGATED
     Dates: start: 19961227
  43. RESTORIL [Concomitant]
     Active Substance: TEMAZEPAM
     Dosage: 30.0MG AS REQUIRED
     Route: 048
     Dates: start: 201004
  44. MOBIC [Concomitant]
     Active Substance: MELOXICAM
     Route: 048
  45. CYCLOBENZAPRINE. [Concomitant]
     Active Substance: CYCLOBENZAPRINE
     Dosage: 10.0MG UNKNOWN
     Route: 048
     Dates: start: 20051019
  46. KLONOPIN [Concomitant]
     Active Substance: CLONAZEPAM
     Dates: start: 19961227
  47. LASIX [Concomitant]
     Active Substance: FUROSEMIDE
     Indication: DIURETIC THERAPY
     Dates: start: 20080317
  48. LASIX [Concomitant]
     Active Substance: FUROSEMIDE
     Indication: SLEEP DISORDER
     Dates: start: 20080317
  49. SYNTHROID [Concomitant]
     Active Substance: LEVOTHYROXINE SODIUM
     Indication: THYROID DISORDER
     Dates: start: 19961227
  50. ESTRACE/ESTRADIOL [Concomitant]
     Dates: start: 20021105
  51. CLINDAMYCIN. [Concomitant]
     Active Substance: CLINDAMYCIN
     Indication: SINUSITIS
     Dates: start: 20021105
  52. MILK OF MAGNESIA [Concomitant]
     Active Substance: MAGNESIUM HYDROXIDE
  53. METHYLPREDNISOLONE. [Concomitant]
     Active Substance: METHYLPREDNISOLONE
     Indication: PERIPHERAL SWELLING
     Dates: start: 2003
  54. LASIX [Concomitant]
     Active Substance: FUROSEMIDE
     Indication: SLEEP DISORDER
     Dates: start: 20021105
  55. LASIX [Concomitant]
     Active Substance: FUROSEMIDE
     Indication: SLEEP DISORDER
     Route: 048
     Dates: start: 201004
  56. SYNTHROID [Concomitant]
     Active Substance: LEVOTHYROXINE SODIUM
     Indication: THYROID DISORDER
     Dates: start: 20021105
  57. SYNTHROID [Concomitant]
     Active Substance: LEVOTHYROXINE SODIUM
     Indication: THYROID DISORDER
     Dates: start: 20060925
  58. SYNTHROID [Concomitant]
     Active Substance: LEVOTHYROXINE SODIUM
     Indication: THYROID DISORDER
     Dates: start: 20080317
  59. SYNTHROID [Concomitant]
     Active Substance: LEVOTHYROXINE SODIUM
     Indication: THYROID DISORDER
     Route: 048
     Dates: start: 201004
  60. ACTIGALL/URSODIOL [Concomitant]
     Dates: start: 20021105
  61. ACTIGALL/URSODIOL [Concomitant]
     Route: 048
     Dates: start: 201004
  62. AMITRIPTYLINE [Concomitant]
     Active Substance: AMITRIPTYLINE
     Indication: SLEEP DISORDER
     Dosage: UNKNOWN
     Dates: start: 20020205
  63. PROVERA [Concomitant]
     Active Substance: MEDROXYPROGESTERONE ACETATE
     Dosage: 10 MG FROM FIRST THROUGH THE TENTH DAY OF THE MONTH
     Dates: start: 19961227
  64. ACTONEL [Concomitant]
     Active Substance: RISEDRONATE SODIUM
     Dates: start: 20021223
  65. XENICAL [Concomitant]
     Active Substance: ORLISTAT
     Dates: start: 20030211
  66. CELEBREX [Concomitant]
     Active Substance: CELECOXIB
     Dates: start: 20010710
  67. NEXIUM [Suspect]
     Active Substance: ESOMEPRAZOLE MAGNESIUM
     Indication: GASTROOESOPHAGEAL REFLUX DISEASE
     Route: 048
     Dates: start: 20060126
  68. KLONOPIN [Concomitant]
     Active Substance: CLONAZEPAM
     Dosage: 0.5MG UNKNOWN
     Route: 048
     Dates: start: 201004
  69. SPIRONOLACTONE/ALDACTONE [Concomitant]
     Dates: start: 19961227
  70. ESTRACE/ESTRADIOL [Concomitant]
     Dates: start: 20080317
  71. FOSAMAX [Concomitant]
     Active Substance: ALENDRONATE SODIUM
     Dosage: 70 MG PER WEEK
     Dates: start: 20060925
  72. AMITRIPTYLINE [Concomitant]
     Active Substance: AMITRIPTYLINE
     Indication: SLEEP DISORDER
     Dosage: 25.0MG UNKNOWN
     Dates: start: 20060925
  73. AMITRIPTYLINE [Concomitant]
     Active Substance: AMITRIPTYLINE
     Indication: SLEEP DISORDER
     Dosage: 50.0MG UNKNOWN
     Dates: start: 20060925
  74. PREVACID [Concomitant]
     Active Substance: LANSOPRAZOLE
     Dates: start: 19961227
  75. PAXIL [Concomitant]
     Active Substance: PAROXETINE HYDROCHLORIDE
     Dates: start: 20021230
  76. NORCO [Concomitant]
     Active Substance: ACETAMINOPHEN\HYDROCODONE BITARTRATE
     Dosage: 5 AND 325 MG TAKE 1 TO 2
  77. PROMETHAZINE HYDROCHLORIDE. [Concomitant]
     Active Substance: PROMETHAZINE HYDROCHLORIDE
     Dosage: 1 TABLET 6-8 HRS AE PER NEED POST NAUSEA
  78. CLINORIL [Concomitant]
     Active Substance: SULINDAC
  79. PREDNISONE. [Concomitant]
     Active Substance: PREDNISONE
     Dosage: 5.0MG UNKNOWN
     Dates: start: 20010525

REACTIONS (13)
  - Lower limb fracture [Unknown]
  - Ankle fracture [Unknown]
  - Chronic kidney disease [Unknown]
  - Joint effusion [Unknown]
  - Depression [Unknown]
  - Osteoporosis [Unknown]
  - Joint dislocation [Unknown]
  - Pain [Unknown]
  - Osteoarthritis [Unknown]
  - Cellulitis [Unknown]
  - Fall [Unknown]
  - Arthritis [Unknown]
  - Peripheral swelling [Unknown]

NARRATIVE: CASE EVENT DATE: 2003
